FAERS Safety Report 8557083-7 (Version None)
Quarter: 2012Q3

REPORT INFORMATION
  Report Type: 
  Country: None (occurrence: None)
  Receive Date: 20120801
  Receipt Date: 20120723
  Transmission Date: 20120928
  Serious: Yes (Hospitalization, Other)
  Sender: FDA-Public Use
  Company Number: FR-ALLERGAN-1210210US

PATIENT
  Age: 2 Year
  Sex: Male
  Weight: 25.2 kg

DRUGS (4)
  1. BOTOX [Suspect]
     Dosage: UNK
     Dates: start: 20101122, end: 20101122
  2. BOTOX [Suspect]
     Dosage: UNK
     Dates: start: 20110607, end: 20110607
  3. BOTOX [Suspect]
     Indication: MUSCLE SPASTICITY
     Dosage: 300 UNITS, UNK
     Dates: start: 20120509, end: 20120509
  4. BOTOX [Suspect]
     Dosage: UNK
     Dates: start: 20111122, end: 20111122

REACTIONS (3)
  - STATUS EPILEPTICUS [None]
  - CONVULSION [None]
  - PYREXIA [None]
